FAERS Safety Report 5788172-8 (Version None)
Quarter: 2008Q2

REPORT INFORMATION
  Report Type: 
  Country: None (occurrence: None)
  Receive Date: 20080625
  Receipt Date: 20080618
  Transmission Date: 20081010
  Serious: Yes (Other)
  Sender: FDA-Public Use
  Company Number: US-BAXTER-2008BH001027

PATIENT
  Age: 67 Year
  Sex: Female

DRUGS (3)
  1. HEPARIN SODIUM INJECTION [Suspect]
     Indication: PROPHYLAXIS
     Route: 042
     Dates: start: 20080121, end: 20080131
  2. HEPARIN SODIUM INJECTION [Suspect]
     Route: 042
     Dates: start: 20080131, end: 20080131
  3. IMMUNOSUPPRESSIVE AGENTS [Concomitant]
     Indication: DRUG USE FOR UNKNOWN INDICATION
     Dosage: DOSE UNIT:UNKNOWN
     Route: 065

REACTIONS (7)
  - BLOOD PRESSURE DECREASED [None]
  - DIZZINESS [None]
  - PALPITATIONS [None]
  - SENSATION OF PRESSURE [None]
  - SWELLING FACE [None]
  - TACHYCARDIA [None]
  - THROMBOSIS IN DEVICE [None]
